FAERS Safety Report 23133089 (Version 1)
Quarter: 2023Q4

REPORT INFORMATION
  Report Type: Report from Study
  Country: US (occurrence: US)
  Receive Date: 20231101
  Receipt Date: 20231101
  Transmission Date: 20240109
  Serious: Yes (Other)
  Sender: FDA-Public Use
  Company Number: US-ABBVIE-5474649

PATIENT
  Sex: Male

DRUGS (1)
  1. HUMIRA [Suspect]
     Active Substance: ADALIMUMAB
     Indication: Rheumatoid arthritis
     Dosage: FORM STRENGTH: 40MG
     Route: 058
     Dates: start: 20230517

REACTIONS (6)
  - Migraine [Recovered/Resolved with Sequelae]
  - Neuralgia [Unknown]
  - Pain in extremity [Unknown]
  - Neck pain [Recovered/Resolved with Sequelae]
  - Musculoskeletal stiffness [Unknown]
  - Back pain [Unknown]
